FAERS Safety Report 9149678 (Version 1)
Quarter: 2013Q1

REPORT INFORMATION
  Report Type: Spontaneous
  Country: GR (occurrence: GR)
  Receive Date: 20130308
  Receipt Date: 20130308
  Transmission Date: 20140127
  Serious: Yes (Other)
  Sender: FDA-Public Use
  Company Number: GR-PFIZER INC-2013074690

PATIENT
  Age: 56 Year
  Sex: Male

DRUGS (1)
  1. METHYLPREDNISOLONE [Suspect]
     Indication: ORGANISING PNEUMONIA
     Dosage: UNK

REACTIONS (2)
  - Organising pneumonia [Recovered/Resolved]
  - Rheumatoid arthritis [Unknown]
